FAERS Safety Report 20853437 (Version 1)
Quarter: 2022Q2

REPORT INFORMATION
  Report Type: Spontaneous
  Country: CN (occurrence: CN)
  Receive Date: 20220520
  Receipt Date: 20220520
  Transmission Date: 20220721
  Serious: Yes (Other)
  Sender: FDA-Public Use
  Company Number: CN-ASPEN-GLO2022CN002798

PATIENT

DRUGS (5)
  1. AZATHIOPRINE [Suspect]
     Active Substance: AZATHIOPRINE
     Indication: Transplant
     Dosage: 3 MG/KG, QD
     Route: 048
  2. BUSULFAN [Suspect]
     Active Substance: BUSULFAN
     Indication: Transplant
     Dosage: 3.2 TO 4 MG/KG/DAY
     Route: 065
  3. HYDROXYUREA [Suspect]
     Active Substance: HYDROXYUREA
     Indication: Transplant
     Dosage: 30 MG/KG, QD
     Route: 048
  4. CYCLOPHOSPHAMIDE [Suspect]
     Active Substance: CYCLOPHOSPHAMIDE
     Indication: Transplant
     Dosage: 50 TO 55 MG/KG/D (ADJUSTED ACCORDING TO AGE, 8 D TO 7 D BEFORE TRANSPLANTATION)
     Route: 065
  5. FLUDARABINE [Suspect]
     Active Substance: FLUDARABINE PHOSPHATE
     Indication: Transplant
     Dosage: (40 MG/M2/D, 6 D TO 2 D BEFORE TRANSPLANTATION)
     Route: 065

REACTIONS (3)
  - Off label use [Unknown]
  - Graft versus host disease [Recovering/Resolving]
  - Bacterial infection [Recovering/Resolving]
